FAERS Safety Report 24904382 (Version 5)
Quarter: 2025Q2

REPORT INFORMATION
  Report Type: Spontaneous
  Country: JP (occurrence: JP)
  Receive Date: 20250130
  Receipt Date: 20250526
  Transmission Date: 20250717
  Serious: Yes (Hospitalization, Other)
  Sender: ABBVIE
  Company Number: JP-ABBVIE-6092803

PATIENT
  Age: 45 Year
  Sex: Female
  Weight: 59 kg

DRUGS (5)
  1. HUMIRA [Suspect]
     Active Substance: ADALIMUMAB
     Indication: Colitis ulcerative
     Route: 058
  2. RINVOQ [Suspect]
     Active Substance: UPADACITINIB
     Indication: Colitis ulcerative
     Route: 048
     Dates: start: 20240830, end: 20241220
  3. RINVOQ [Suspect]
     Active Substance: UPADACITINIB
     Indication: Colitis ulcerative
     Route: 048
     Dates: start: 20250114
  4. RINVOQ [Suspect]
     Active Substance: UPADACITINIB
     Indication: Colitis ulcerative
     Route: 048
     Dates: start: 20240814, end: 20240819
  5. TOFACITINIB [Concomitant]
     Active Substance: TOFACITINIB
     Indication: Colitis ulcerative
     Route: 065
     Dates: start: 20240820, end: 20240822

REACTIONS (6)
  - Appendicitis perforated [Recovered/Resolved]
  - Appendicitis [Unknown]
  - Pneumocystis jirovecii pneumonia [Recovering/Resolving]
  - Colitis ulcerative [Unknown]
  - Product residue present [Unknown]
  - Faecalith [Recovered/Resolved]

NARRATIVE: CASE EVENT DATE: 20240628
